FAERS Safety Report 23852150 (Version 3)
Quarter: 2024Q2

REPORT INFORMATION
  Report Type: Report from Study
  Country: ES (occurrence: ES)
  Receive Date: 20240514
  Receipt Date: 20240613
  Transmission Date: 20240716
  Serious: Yes (Hospitalization)
  Sender: FDA-Public Use
  Company Number: ES-SA-2016SA229112

PATIENT
  Age: 25 Year
  Sex: Male

DRUGS (6)
  1. ALEMTUZUMAB [Suspect]
     Active Substance: ALEMTUZUMAB
     Indication: Relapsing multiple sclerosis
     Dosage: 12 MG,QD
     Route: 041
     Dates: start: 20161128, end: 20161202
  2. TECFIDERA [Concomitant]
     Active Substance: DIMETHYL FUMARATE
     Dosage: UNK
     Dates: start: 20150701
  3. SOLIFENACIN SUCCINATE [Concomitant]
     Active Substance: SOLIFENACIN SUCCINATE
     Indication: Hypertonic bladder
     Dosage: 10 MG,QD
     Dates: start: 20150901
  4. METHYLPHENIDATE [Concomitant]
     Active Substance: METHYLPHENIDATE
     Indication: Psychomotor hyperactivity
     Dosage: UNK UNK,QD
     Dates: start: 20150203
  5. ACYCLOVIR [Concomitant]
     Active Substance: ACYCLOVIR
     Indication: Prophylaxis
     Dosage: 200 MG,Q12H
     Dates: start: 20161128, end: 20170210
  6. SULFAMETHOXAZOLE [Concomitant]
     Active Substance: SULFAMETHOXAZOLE
     Indication: Prophylaxis
     Dosage: UNK UNK,TIW
     Dates: start: 20161128, end: 20170210

REACTIONS (9)
  - Pyrexia [Recovered/Resolved]
  - Rash [Recovered/Resolved]
  - Rash [Recovered/Resolved]
  - Rash [Recovered/Resolved]
  - Gastroenteritis [Recovered/Resolved]
  - Vitamin D deficiency [Recovered/Resolved]
  - Anxiety [Recovered/Resolved]
  - Influenza [Recovered/Resolved]
  - Genital infection fungal [Recovered/Resolved]

NARRATIVE: CASE EVENT DATE: 20161129
